FAERS Safety Report 7420927-6 (Version None)
Quarter: 2011Q2

REPORT INFORMATION
  Report Type: 
  Country: None (occurrence: None)
  Receive Date: 20110418
  Receipt Date: 20110411
  Transmission Date: 20111010
  Serious: Yes (Hospitalization)
  Sender: FDA-Public Use
  Company Number: B0713226A

PATIENT
  Sex: Female

DRUGS (2)
  1. XELODA [Concomitant]
     Indication: BREAST CANCER
     Route: 048
  2. TYKERB [Suspect]
     Indication: BREAST CANCER
     Route: 048
     Dates: start: 20101005, end: 20110408

REACTIONS (1)
  - INTERSTITIAL LUNG DISEASE [None]
